FAERS Safety Report 4540903-0 (Version None)
Quarter: 2004Q4

REPORT INFORMATION
  Report Type: 
  Country: None (occurrence: None)
  Receive Date: 20041229
  Receipt Date: 20021204
  Transmission Date: 20050328
  Serious: Yes (Hospitalization, Other)
  Sender: FDA-Public Use
  Company Number: GB-GLAXOSMITHKLINE-B0287185A

PATIENT
  Age: 58 Year
  Sex: Male
  Weight: 66.8 kg

DRUGS (12)
  1. REQUIP [Suspect]
     Indication: PARKINSON'S DISEASE
     Dosage: 8MG PER DAY
     Route: 048
     Dates: start: 20010101, end: 20021201
  2. ACETAMINOPHEN [Concomitant]
  3. PYRIDOXINE HCL [Concomitant]
  4. DOCUSATE [Concomitant]
  5. BEZAFIBRATE [Concomitant]
  6. SENNA [Concomitant]
  7. SINEMET [Concomitant]
  8. CO-CARELDOPA [Concomitant]
  9. BEZALIP [Concomitant]
     Dosage: 400MG PER DAY
     Route: 065
  10. LACTULOSE [Concomitant]
     Dosage: 10ML TWICE PER DAY
     Route: 065
  11. ASPIRIN [Concomitant]
     Dosage: 300MG PER DAY
     Route: 048
  12. ATENOLOL [Concomitant]
     Dosage: 25MG PER DAY
     Route: 065

REACTIONS (8)
  - CHEST PAIN [None]
  - CONFUSIONAL STATE [None]
  - DYSPNOEA [None]
  - HALLUCINATION [None]
  - PLEURAL EFFUSION [None]
  - PSYCHOTIC DISORDER [None]
  - PYREXIA [None]
  - TUBERCULOSIS [None]
